FAERS Safety Report 5786507-3 (Version None)
Quarter: 2008Q2

REPORT INFORMATION
  Report Type: 
  Country: None (occurrence: None)
  Receive Date: 20080624
  Receipt Date: 20080609
  Transmission Date: 20081010
  Serious: No
  Sender: FDA-Public Use
  Company Number: US-BOEHRINGER INGELHEIM GMBH, GERMANY-2008-BP-08933BP

PATIENT
  Sex: Female

DRUGS (2)
  1. SPIRIVA [Suspect]
     Indication: EMPHYSEMA
     Route: 055
     Dates: start: 20080528, end: 20080529
  2. NARDIL [Concomitant]
     Indication: ELECTROLYTE IMBALANCE

REACTIONS (4)
  - DRY MOUTH [None]
  - HEADACHE [None]
  - PLEURITIC PAIN [None]
  - TRACHEAL PAIN [None]
